FAERS Safety Report 14267516 (Version 1)
Quarter: 2017Q4

REPORT INFORMATION
  Report Type: Spontaneous
  Country: US (occurrence: US)
  Receive Date: 20171211
  Receipt Date: 20171211
  Transmission Date: 20180321
  Serious: No
  Sender: FDA-Public Use
  Company Number: US-PFIZER INC-2017527670

PATIENT
  Age: 74 Year
  Sex: Female
  Weight: 45.81 kg

DRUGS (1)
  1. SUTENT [Suspect]
     Active Substance: SUNITINIB MALATE
     Indication: BREAST CANCER METASTATIC
     Dosage: 37.5 MG, UNK
     Route: 048
     Dates: start: 2016, end: 2017

REACTIONS (2)
  - Product use in unapproved indication [Unknown]
  - Fistula [Unknown]

NARRATIVE: CASE EVENT DATE: 2016
